FAERS Safety Report 25455449 (Version 1)
Quarter: 2025Q2

REPORT INFORMATION
  Report Type: Spontaneous
  Country: US (occurrence: US)
  Receive Date: 20250619
  Receipt Date: 20250619
  Transmission Date: 20250716
  Serious: No
  Sender: ELI LILLY AND COMPANY
  Company Number: US-ELI_LILLY_AND_COMPANY-US202506015923

PATIENT
  Age: 39 Year
  Sex: Female

DRUGS (16)
  1. MOUNJARO [Suspect]
     Active Substance: TIRZEPATIDE
     Indication: Blood glucose abnormal
     Route: 058
  2. MOUNJARO [Suspect]
     Active Substance: TIRZEPATIDE
     Indication: Blood glucose abnormal
     Route: 058
  3. MOUNJARO [Suspect]
     Active Substance: TIRZEPATIDE
     Indication: Blood glucose abnormal
     Route: 058
  4. MOUNJARO [Suspect]
     Active Substance: TIRZEPATIDE
     Indication: Blood glucose abnormal
     Route: 058
  5. MOUNJARO [Suspect]
     Active Substance: TIRZEPATIDE
     Indication: Lipids abnormal
  6. MOUNJARO [Suspect]
     Active Substance: TIRZEPATIDE
     Indication: Lipids abnormal
  7. MOUNJARO [Suspect]
     Active Substance: TIRZEPATIDE
     Indication: Lipids abnormal
  8. MOUNJARO [Suspect]
     Active Substance: TIRZEPATIDE
     Indication: Lipids abnormal
  9. MOUNJARO [Suspect]
     Active Substance: TIRZEPATIDE
     Indication: Weight control
  10. MOUNJARO [Suspect]
     Active Substance: TIRZEPATIDE
     Indication: Weight control
  11. MOUNJARO [Suspect]
     Active Substance: TIRZEPATIDE
     Indication: Weight control
  12. MOUNJARO [Suspect]
     Active Substance: TIRZEPATIDE
     Indication: Weight control
  13. MOUNJARO [Suspect]
     Active Substance: TIRZEPATIDE
     Indication: Immune system disorder
  14. MOUNJARO [Suspect]
     Active Substance: TIRZEPATIDE
     Indication: Immune system disorder
  15. MOUNJARO [Suspect]
     Active Substance: TIRZEPATIDE
     Indication: Immune system disorder
  16. MOUNJARO [Suspect]
     Active Substance: TIRZEPATIDE
     Indication: Immune system disorder

REACTIONS (3)
  - Off label use [Unknown]
  - Incorrect dose administered [Unknown]
  - Injection site urticaria [Unknown]

NARRATIVE: CASE EVENT DATE: 20250610
